FAERS Safety Report 25845514 (Version 1)
Quarter: 2025Q3

REPORT INFORMATION
  Report Type: Report from Study
  Country: CA (occurrence: CA)
  Receive Date: 20250925
  Receipt Date: 20250925
  Transmission Date: 20251021
  Serious: Yes (Hospitalization)
  Sender: ABBVIE
  Company Number: CA-ABBVIE-6472262

PATIENT
  Age: 63 Year
  Sex: Female

DRUGS (1)
  1. HUMIRA [Suspect]
     Active Substance: ADALIMUMAB
     Indication: Ankylosing spondylitis
     Route: 058
     Dates: start: 2019, end: 2021

REACTIONS (7)
  - Appendicectomy [Unknown]
  - Inflammation [Recovering/Resolving]
  - Amnesia [Unknown]
  - Fatigue [Unknown]
  - Periorbital swelling [Unknown]
  - Hypersensitivity [Unknown]
  - Paraesthesia oral [Unknown]

NARRATIVE: CASE EVENT DATE: 20210101
